FAERS Safety Report 4590370-6 (Version None)
Quarter: 2005Q1

REPORT INFORMATION
  Report Type: 
  Country: None (occurrence: None)
  Receive Date: 20050224
  Receipt Date: 20041217
  Transmission Date: 20050727
  Serious: Yes (Hospitalization)
  Sender: FDA-Public Use
  Company Number: US-MERCK-0412USA02269

PATIENT
  Age: 69 Year
  Sex: Female
  Weight: 82 kg

DRUGS (3)
  1. VIOXX [Suspect]
     Indication: RHEUMATOID ARTHRITIS
     Route: 048
     Dates: end: 20011001
  2. VIOXX [Suspect]
     Indication: OSTEOARTHRITIS
     Route: 048
     Dates: end: 20011001
  3. PREMARIN [Concomitant]
     Route: 065

REACTIONS (1)
  - CEREBROVASCULAR ACCIDENT [None]
